FAERS Safety Report 6635220-9 (Version None)
Quarter: 2010Q1

REPORT INFORMATION
  Report Type: 
  Country: None (occurrence: None)
  Receive Date: 20100315
  Receipt Date: 20100308
  Transmission Date: 20100710
  Serious: Yes (Death)
  Sender: FDA-Public Use
  Company Number: US-GILEAD-2010-0027458

PATIENT
  Sex: Female
  Weight: 54.48 kg

DRUGS (25)
  1. LETAIRIS [Suspect]
     Indication: PULMONARY ARTERIAL HYPERTENSION
     Route: 048
     Dates: start: 20071121, end: 20100223
  2. SPIRIVA [Concomitant]
  3. REVATIO [Concomitant]
  4. ZEMAIRA [Concomitant]
  5. IPRATROPIUM [Concomitant]
  6. XOPENEX [Concomitant]
  7. ADVAIR DISKUS 100/50 [Concomitant]
  8. FLONASE [Concomitant]
  9. DHEA [Concomitant]
  10. FISH OIL [Concomitant]
  11. VITAMIN C [Concomitant]
  12. CALCIUM [Concomitant]
  13. LEVAQUIN [Concomitant]
  14. DOXYCYCLINE [Concomitant]
  15. PREDNISONE TAB [Concomitant]
  16. NASONEX [Concomitant]
  17. ATIVAN [Concomitant]
  18. OXYGEN [Concomitant]
  19. SINGULAIR [Concomitant]
  20. ZYRTEC [Concomitant]
  21. METFORMIN HCL [Concomitant]
  22. SPIRONOLACTONE [Concomitant]
  23. BACTRIM [Concomitant]
  24. LEVOTHYROXINE SODIUM [Concomitant]
  25. ZEGERID [Concomitant]

REACTIONS (3)
  - ANAPHYLACTIC REACTION [None]
  - PNEUMONIA [None]
  - RESPIRATORY FAILURE [None]
